APPROVED DRUG PRODUCT: ARAVA
Active Ingredient: LEFLUNOMIDE
Strength: 10MG
Dosage Form/Route: TABLET;ORAL
Application: N020905 | Product #001 | TE Code: AB
Applicant: SANOFI AVENTIS US LLC
Approved: Sep 10, 1998 | RLD: Yes | RS: No | Type: RX